FAERS Safety Report 14741728 (Version 2)
Quarter: 2018Q2

REPORT INFORMATION
  Report Type: Spontaneous
  Country: PL (occurrence: PL)
  Receive Date: 20180410
  Receipt Date: 20180416
  Transmission Date: 20180711
  Serious: Yes (Other)
  Sender: FDA-Public Use
  Company Number: PL-GILEAD-2018-0331352

PATIENT
  Age: 36 Year
  Sex: Female

DRUGS (7)
  1. EQUORAL [Concomitant]
     Active Substance: CYCLOSPORINE
     Dosage: 175 UNK, UNK
     Dates: start: 201709
  2. COPEGUS [Concomitant]
     Active Substance: RIBAVIRIN
     Indication: CHRONIC HEPATITIS C
     Dosage: 800 MG, UNK
     Route: 048
     Dates: start: 20160630, end: 20160923
  3. EQUORAL [Concomitant]
     Active Substance: CYCLOSPORINE
     Indication: PROPHYLAXIS AGAINST TRANSPLANT REJECTION
     Dosage: 175 MG, BID
     Route: 048
     Dates: start: 1989, end: 20160816
  4. IMURAN [Concomitant]
     Active Substance: AZATHIOPRINE
     Indication: PROPHYLAXIS AGAINST TRANSPLANT REJECTION
     Dosage: 100 MG, QD
     Route: 048
     Dates: start: 1989
  5. HARVONI [Suspect]
     Active Substance: LEDIPASVIR\SOFOSBUVIR
     Indication: CHRONIC HEPATITIS C
     Dosage: UNK UNK, QD
     Route: 048
     Dates: start: 20160630, end: 20160923
  6. EQUORAL [Concomitant]
     Active Substance: CYCLOSPORINE
     Dosage: 375 MG, UNK
     Route: 048
     Dates: start: 20160816, end: 201709
  7. ENCORTON                           /00044701/ [Concomitant]
     Active Substance: PREDNISONE
     Indication: PROPHYLAXIS AGAINST TRANSPLANT REJECTION
     Dosage: 5 MG, QD
     Route: 048
     Dates: start: 1989

REACTIONS (1)
  - Immunosuppressant drug level decreased [Recovered/Resolved]

NARRATIVE: CASE EVENT DATE: 20160816
